FAERS Safety Report 12563038 (Version 3)
Quarter: 2016Q3

REPORT INFORMATION
  Report Type: Report from Study
  Country: US (occurrence: US)
  Receive Date: 20160715
  Receipt Date: 20160926
  Transmission Date: 20161109
  Serious: Yes (Death, Hospitalization, Other)
  Sender: FDA-Public Use
  Company Number: US-GILEAD-2016-0223159

PATIENT
  Age: 20 Year
  Sex: Male

DRUGS (20)
  1. CREON [Concomitant]
     Active Substance: PANCRELIPASE AMYLASE\PANCRELIPASE LIPASE\PANCRELIPASE PROTEASE
  2. STERILE WATER [Concomitant]
     Active Substance: WATER
  3. LIDOCAINE AND PRILOCAINE [Concomitant]
     Active Substance: LIDOCAINE\PRILOCAINE
  4. POLYETHYLENE GLYCOL 3350 GRX [Concomitant]
  5. SERTRALINE [Concomitant]
     Active Substance: SERTRALINE HYDROCHLORIDE
  6. ADVAIR HFA [Concomitant]
     Active Substance: FLUTICASONE PROPIONATE\SALMETEROL XINAFOATE
  7. AZITHROMYCIN ANHYDROUS. [Concomitant]
     Active Substance: AZITHROMYCIN ANHYDROUS
  8. PULMOZYME [Concomitant]
     Active Substance: DORNASE ALFA
  9. AZTREONAM LYSINE [Suspect]
     Active Substance: AZTREONAM LYSINE
     Indication: CYSTIC FIBROSIS
     Dosage: 75 MG, UNK
     Route: 055
     Dates: start: 20150626
  10. FERROUS SULFATE. [Concomitant]
     Active Substance: FERROUS SULFATE
  11. MEPHYTON [Concomitant]
     Active Substance: PHYTONADIONE
  12. ABILIFY [Concomitant]
     Active Substance: ARIPIPRAZOLE
  13. COLISTIN [Concomitant]
     Active Substance: COLISTIN
  14. CYPROHEPTADINE. [Concomitant]
     Active Substance: CYPROHEPTADINE
  15. SODIUM CHLORIDE. [Concomitant]
     Active Substance: SODIUM CHLORIDE
  16. VORICONAZOLE. [Concomitant]
     Active Substance: VORICONAZOLE
  17. AQUADEKS                           /07679501/ [Concomitant]
  18. LANSOPRAZOLE. [Concomitant]
     Active Substance: LANSOPRAZOLE
  19. OLANZAPINE. [Concomitant]
     Active Substance: OLANZAPINE
  20. TOBI [Concomitant]
     Active Substance: TOBRAMYCIN

REACTIONS (2)
  - Death [Fatal]
  - Haemorrhage [Unknown]

NARRATIVE: CASE EVENT DATE: 20160714
